FAERS Safety Report 12135822 (Version 1)
Quarter: 2016Q1

REPORT INFORMATION
  Report Type: Spontaneous
  Country: US (occurrence: US)
  Receive Date: 20160302
  Receipt Date: 20160302
  Transmission Date: 20160526
  Serious: No
  Sender: FDA-Public Use
  Company Number: US-BIOGEN-2016BI00172301

PATIENT

DRUGS (1)
  1. AVONEX [Suspect]
     Active Substance: INTERFERON BETA-1A
     Indication: MULTIPLE SCLEROSIS
     Route: 065

REACTIONS (9)
  - Respiratory disorder [Unknown]
  - Pyrexia [Unknown]
  - Chills [Unknown]
  - Diplopia [Unknown]
  - Influenza like illness [Unknown]
  - Myalgia [Unknown]
  - Nasopharyngitis [Unknown]
  - Headache [Unknown]
  - Sensory disturbance [Unknown]
